FAERS Safety Report 14671829 (Version 1)
Quarter: 2018Q1

REPORT INFORMATION
  Report Type: Spontaneous
  Country: FR (occurrence: FR)
  Receive Date: 20180323
  Receipt Date: 20180323
  Transmission Date: 20180509
  Serious: Yes (Other)
  Sender: FDA-Public Use
  Company Number: FR-MERCK KGAA-2044356

PATIENT
  Age: 60 Year
  Sex: Female

DRUGS (7)
  1. METEOSPASMYL [Concomitant]
     Active Substance: ALVERINE CITRATE\DIMETHICONE
  2. CARBOSYMAG [Concomitant]
  3. LEVOTHYROX NF [Suspect]
     Active Substance: LEVOTHYROXINE SODIUM
     Dates: start: 20170810, end: 201709
  4. NOVOTHYROX [Suspect]
     Active Substance: LEVOTHYROXINE SODIUM
     Indication: POST PROCEDURAL HYPOTHYROIDISM
     Dates: start: 201705
  5. ULTRA LEVURE [Concomitant]
     Active Substance: SACCHAROMYCES CEREVISIAE
  6. SMECTA [Concomitant]
     Active Substance: MONTMORILLONITE
  7. SPASFON-LYOC [Concomitant]
     Active Substance: PHLOROGLUCINOL

REACTIONS (35)
  - Overdose [None]
  - Dehydration [Recovering/Resolving]
  - Gastrointestinal disorder [Recovering/Resolving]
  - Feeling abnormal [Recovering/Resolving]
  - Malaise [Recovering/Resolving]
  - Chest discomfort [Recovering/Resolving]
  - Feeling hot [Recovering/Resolving]
  - Diarrhoea [Recovering/Resolving]
  - Renal failure [Recovering/Resolving]
  - Loss of consciousness [Recovering/Resolving]
  - Sensory loss [Recovering/Resolving]
  - Angiopathy [Recovering/Resolving]
  - Blood thyroid stimulating hormone increased [Recovering/Resolving]
  - Muscle spasms [Recovered/Resolved]
  - Mood swings [Recovering/Resolving]
  - Headache [Recovering/Resolving]
  - Dysentery [Recovering/Resolving]
  - Dizziness [Recovering/Resolving]
  - Confusional state [Recovering/Resolving]
  - Loss of personal independence in daily activities [Recovering/Resolving]
  - Dyspnoea exertional [Recovering/Resolving]
  - Palpitations [Recovered/Resolved]
  - Chest pain [Recovering/Resolving]
  - Blepharospasm [Recovering/Resolving]
  - Social avoidant behaviour [Recovering/Resolving]
  - Impaired driving ability [Recovering/Resolving]
  - Heart rate increased [Recovering/Resolving]
  - Speech disorder [Recovering/Resolving]
  - Onychoclasis [Recovering/Resolving]
  - Eating disorder [Recovering/Resolving]
  - Tremor [Recovering/Resolving]
  - Insomnia [Not Recovered/Not Resolved]
  - Fatigue [Recovering/Resolving]
  - Dyspnoea [Recovering/Resolving]
  - Hyperhidrosis [Recovering/Resolving]

NARRATIVE: CASE EVENT DATE: 2017
